FAERS Safety Report 7622662-8 (Version None)
Quarter: 2011Q3

REPORT INFORMATION
  Report Type: 
  Country: None (occurrence: None)
  Receive Date: 20110712
  Receipt Date: 20110627
  Transmission Date: 20111222
  Serious: Yes (Hospitalization, Other)
  Sender: FDA-Public Use
  Company Number: 2011MA008125

PATIENT
  Age: 15 Year
  Sex: Female

DRUGS (3)
  1. SERTRALINE HYDROCHLORIDE [Suspect]
     Indication: ANXIETY
  2. DULOXETINE HYDROCHLORIDE [Suspect]
     Indication: ANXIETY DISORDER
  3. HYDROXYZINE HYDROCHLORIDE [Suspect]
     Indication: ANXIETY
     Dosage: 50 MG;Q8H;PO
     Route: 048

REACTIONS (14)
  - OROPHARYNGEAL DISCOMFORT [None]
  - NAUSEA [None]
  - DISTURBANCE IN ATTENTION [None]
  - ANXIETY [None]
  - DRUG DEPENDENCE [None]
  - BLOOD PRESSURE SYSTOLIC INCREASED [None]
  - DRUG TOLERANCE [None]
  - DRUG WITHDRAWAL SYNDROME [None]
  - IRRITABILITY [None]
  - NASAL CONGESTION [None]
  - AFFECTIVE DISORDER [None]
  - CONDITION AGGRAVATED [None]
  - HEART RATE INCREASED [None]
  - AUTONOMIC NERVOUS SYSTEM IMBALANCE [None]
